FAERS Safety Report 5077944-3 (Version None)
Quarter: 2006Q3

REPORT INFORMATION
  Report Type: 
  Country: None (occurrence: None)
  Receive Date: 20060808
  Receipt Date: 20060727
  Transmission Date: 20061208
  Serious: Yes (Hospitalization)
  Sender: FDA-Public Use
  Company Number: RS006123-J

PATIENT
  Age: 82 Year
  Sex: Male
  Weight: 54 kg

DRUGS (8)
  1. RABEPRAZOLE SODIUM [Suspect]
     Indication: REFLUX OESOPHAGITIS
     Dosage: 10 MG, 1 IN 1 D, ORAL
     Route: 048
     Dates: start: 20060421, end: 20060529
  2. LANSOPRAZOLE [Concomitant]
  3. HALCION [Concomitant]
  4. ONEALFA (ALFACALCIDOL) [Concomitant]
  5. SIMVASTATIN [Concomitant]
  6. BUFFERIN 81 MG (BUFFERIN) [Concomitant]
  7. CEROCRAL (IFENPRODIL TARTRATE) [Concomitant]
  8. SOLITA T3 (SOLITA T) [Concomitant]

REACTIONS (4)
  - ILL-DEFINED DISORDER [None]
  - INAPPROPRIATE ANTIDIURETIC HORMONE SECRETION [None]
  - POST PROCEDURAL DIARRHOEA [None]
  - POST PROCEDURAL VOMITING [None]
